FAERS Safety Report 7005222-1 (Version None)
Quarter: 2010Q3

REPORT INFORMATION
  Report Type: 
  Country: None (occurrence: None)
  Receive Date: 20100920
  Receipt Date: 20100920
  Transmission Date: 20110219
  Serious: Yes (Life-Threatening, Disabling, Other)
  Sender: FDA-Public Use
  Company Number: None

PATIENT
  Sex: Male
  Weight: 81.6475 kg

DRUGS (1)
  1. LEVETIRACETAM [Suspect]
     Indication: EPILEPSY
     Dosage: 500 MG CAPSULE 1000MG TWICE DAILY ORAL EARLY 2009
     Route: 048
     Dates: start: 20090101

REACTIONS (10)
  - ALOPECIA [None]
  - APATHY [None]
  - CONTUSION [None]
  - COORDINATION ABNORMAL [None]
  - DARK CIRCLES UNDER EYES [None]
  - DYSPNOEA [None]
  - FATIGUE [None]
  - IMPRISONMENT [None]
  - MUSCLE TWITCHING [None]
  - PRODUCT SUBSTITUTION ISSUE [None]
